FAERS Safety Report 21332722 (Version 3)
Quarter: 2022Q4

REPORT INFORMATION
  Report Type: Spontaneous
  Country: GB (occurrence: GB)
  Receive Date: 20220914
  Receipt Date: 20221220
  Transmission Date: 20230112
  Serious: Yes (Other)
  Sender: FDA-Public Use
  Company Number: None

PATIENT
  Sex: Male

DRUGS (12)
  1. ALLOPURINOL [Interacting]
     Active Substance: ALLOPURINOL
     Indication: Product used for unknown indication
     Dosage: 1 A DAY OVER 10 YEARS.
  2. AMLODIPINE [Interacting]
     Active Substance: AMLODIPINE BESYLATE
     Indication: Product used for unknown indication
     Dosage: 1 A DAY OVER 10 YEARS.
  3. ATORVASTATIN [Interacting]
     Active Substance: ATORVASTATIN
     Indication: Product used for unknown indication
     Dosage: 1 A DAY OVER 10 YEARS.
  4. ATENOLOL [Interacting]
     Active Substance: ATENOLOL
     Indication: Product used for unknown indication
     Dosage: 1 A DAY OVER 10 YEARS.
  5. CLONAZEPAM [Interacting]
     Active Substance: CLONAZEPAM
     Indication: Product used for unknown indication
     Dosage: 1 - 4 TIMES A DAY, OVER 10 YEARS.
     Dates: end: 20191111
  6. GABAPENTIN [Interacting]
     Active Substance: GABAPENTIN
     Indication: Product used for unknown indication
     Dosage: 4 - 3 TIMES A DAY  3,600MG, OVER 10 YEARS.
  7. ISOSORBIDE MONONITRATE [Interacting]
     Active Substance: ISOSORBIDE MONONITRATE
     Indication: Product used for unknown indication
     Dosage: 80 MG, OVER 10 YEARS.
  8. LISINOPRIL [Interacting]
     Active Substance: LISINOPRIL
     Indication: Product used for unknown indication
     Dosage: 1 A DAY OVER 10 YEARS
  9. SERTRALINE [Interacting]
     Active Substance: SERTRALINE HYDROCHLORIDE
     Indication: Product used for unknown indication
     Dosage: 200MG, OVER 10 YEARS.
  10. TRAMADOL HYDROCHLORIDE [Interacting]
     Active Substance: TRAMADOL HYDROCHLORIDE
     Indication: Product used for unknown indication
     Dosage: 1 - 4 TIMES A DAY  200MG, OVER 10 YEARS.
     Dates: end: 20191111
  11. BACLOFEN [Interacting]
     Active Substance: BACLOFEN
     Indication: Product used for unknown indication
     Dosage: 1 - 4 TIMES A DAY 40MG, OVER 10 YEARS.
     Dates: end: 20191111
  12. ASPIRIN [Interacting]
     Active Substance: ASPIRIN
     Indication: Product used for unknown indication
     Dosage: 1 A DAY OVER 10 YEARS. TOTAL PER DAY 4,625 MG A DAY/10 YEAR.

REACTIONS (9)
  - Abnormal dreams [Recovered/Resolved]
  - Headache [Recovered/Resolved]
  - Coordination abnormal [Recovered/Resolved]
  - Muscle spasms [Recovered/Resolved]
  - Insomnia [Recovered/Resolved]
  - Visual impairment [Recovered/Resolved]
  - Drug interaction [Unknown]
  - Confusion postoperative [Recovered/Resolved]
  - Agitation postoperative [Recovered/Resolved]
